FAERS Safety Report 9127095 (Version 1)
Quarter: 2013Q1

REPORT INFORMATION
  Report Type: Spontaneous
  Country: ES (occurrence: ES)
  Receive Date: 20130228
  Receipt Date: 20130228
  Transmission Date: 20140127
  Serious: Yes (Life-Threatening, Hospitalization)
  Sender: FDA-Public Use
  Company Number: PHHY2013ES007914

PATIENT
  Age: 69 Year
  Sex: Female

DRUGS (9)
  1. TASIGNA [Suspect]
     Indication: CHRONIC MYELOID LEUKAEMIA
     Dosage: 400 MG, QD
     Route: 048
     Dates: start: 20120503, end: 20121031
  2. LEVOTHROID [Concomitant]
  3. EMCONCOR [Concomitant]
  4. VALS [Concomitant]
  5. NATECAL [Concomitant]
  6. XALATAN [Concomitant]
  7. RISEDON [Concomitant]
  8. DEPRELIO [Concomitant]
  9. LORAZEPAM [Concomitant]

REACTIONS (2)
  - Haemorrhage [Unknown]
  - Thrombocytopenia [Not Recovered/Not Resolved]
